FAERS Safety Report 19571478 (Version 1)
Quarter: 2021Q3

REPORT INFORMATION
  Report Type: Spontaneous
  Country: US (occurrence: US)
  Receive Date: 20210716
  Receipt Date: 20210716
  Transmission Date: 20211014
  Serious: Yes (Other)
  Sender: FDA-Public Use
  Company Number: US-GLAXOSMITHKLINE-US2021GSK149218

PATIENT
  Sex: Female

DRUGS (7)
  1. RANITIDINE CAPSULE [Suspect]
     Active Substance: RANITIDINE
     Indication: BARRETT^S OESOPHAGUS
     Dosage: UNK UNK, QD
     Route: 065
     Dates: start: 198701, end: 201112
  2. RANITIDINE. [Suspect]
     Active Substance: RANITIDINE
     Indication: BARRETT^S OESOPHAGUS
     Dosage: UNKNOWN AT THIS TIME BOTH
     Route: 065
     Dates: start: 198701, end: 201112
  3. ZANTAC [Suspect]
     Active Substance: RANITIDINE HYDROCHLORIDE
     Indication: BARRETT^S OESOPHAGUS
     Dosage: UNK UNK, QD
     Route: 065
     Dates: start: 198701, end: 201112
  4. ZANTAC [Suspect]
     Active Substance: RANITIDINE HYDROCHLORIDE
     Indication: BARRETT^S OESOPHAGUS
     Dosage: UNK UNK, QD
     Route: 065
     Dates: start: 198701, end: 201112
  5. ZANTAC [Suspect]
     Active Substance: RANITIDINE HYDROCHLORIDE
     Indication: BARRETT^S OESOPHAGUS
     Dosage: UNK UNK, QD
     Route: 065
     Dates: start: 198701, end: 201112
  6. RANITIDINE. [Suspect]
     Active Substance: RANITIDINE
     Indication: BARRETT^S OESOPHAGUS
     Dosage: UNK UNK, QD
     Route: 065
     Dates: start: 198701, end: 201112
  7. RANITIDINE. [Suspect]
     Active Substance: RANITIDINE
     Indication: BARRETT^S OESOPHAGUS
     Dosage: UNKNOWN AT THIS TIME BOTH
     Route: 065
     Dates: start: 198701, end: 201112

REACTIONS (1)
  - Breast cancer [Unknown]
